FAERS Safety Report 13429807 (Version 1)
Quarter: 2017Q2

REPORT INFORMATION
  Report Type: Spontaneous
  Country: IT (occurrence: IT)
  Receive Date: 20170412
  Receipt Date: 20170412
  Transmission Date: 20170830
  Serious: Yes (Hospitalization, Other)
  Sender: FDA-Public Use
  Company Number: IT-CIPLA LTD.-2017IT05320

PATIENT

DRUGS (7)
  1. PEMETREXED. [Suspect]
     Active Substance: PEMETREXED
     Indication: LUNG ADENOCARCINOMA
     Dosage: 500 MG/M2, ONCE EVERY 21 DAYS (SECOND LINE CHEMOTHERAPY)
     Route: 065
  2. VITAMIN B12 [Concomitant]
     Active Substance: CYANOCOBALAMIN
     Indication: PREMEDICATION
     Dosage: UNK
     Route: 065
  3. CARBOPLATIN. [Suspect]
     Active Substance: CARBOPLATIN
     Indication: LUNG ADENOCARCINOMA
     Dosage: AUC 5 MG/ML/MIN, ONCE EVERY 21 DAYS, THREE CYCLES
     Route: 065
     Dates: end: 200809
  4. CARBOPLATIN. [Suspect]
     Active Substance: CARBOPLATIN
     Indication: LUNG ADENOCARCINOMA
     Dosage: AUC 5 MG/ML/MIN, ONCE EVERY 21 DAYS (SECOND LINE CHEMOTHERAPY)
     Route: 065
  5. PACLITAXEL. [Suspect]
     Active Substance: PACLITAXEL
     Indication: LUNG ADENOCARCINOMA
     Dosage: 175 MG/M2, ONCE EVERY 21 DAYS (SECOND LINE CHEMOTHERAPY)
     Route: 065
  6. PACLITAXEL. [Suspect]
     Active Substance: PACLITAXEL
     Indication: LUNG ADENOCARCINOMA
     Dosage: 175 MG/M2, ONCE EVERY 21 DAYS, THREE CYCLES
     Route: 065
     Dates: end: 200809
  7. FOLIC ACID. [Concomitant]
     Active Substance: FOLIC ACID
     Indication: PREMEDICATION
     Dosage: UNK
     Route: 065

REACTIONS (5)
  - Bone marrow failure [Unknown]
  - Metastasis [Unknown]
  - Dehydration [Recovered/Resolved]
  - Acute kidney injury [Recovering/Resolving]
  - Vomiting [Unknown]
